FAERS Safety Report 18184692 (Version 2)
Quarter: 2020Q3

REPORT INFORMATION
  Report Type: Spontaneous
  Country: US (occurrence: US)
  Receive Date: 20200824
  Receipt Date: 20200917
  Transmission Date: 20201103
  Serious: No
  Sender: FDA-Public Use
  Company Number: US-ASTRAZENECA-2020SF04509

PATIENT
  Sex: Male
  Weight: 108.9 kg

DRUGS (5)
  1. LEVOTHYROXINE. [Concomitant]
     Active Substance: LEVOTHYROXINE
     Indication: THYROID DISORDER
  2. BYDUREON BCISE [Suspect]
     Active Substance: EXENATIDE
     Indication: TYPE 2 DIABETES MELLITUS
     Route: 058
     Dates: start: 2015
  3. PIOGLITIZONE [Concomitant]
     Indication: DIABETES MELLITUS
  4. SIMVSTATIN [Concomitant]
  5. METFORMIN [Concomitant]
     Active Substance: METFORMIN HYDROCHLORIDE
     Indication: DIABETES MELLITUS

REACTIONS (8)
  - Device leakage [Unknown]
  - Needle issue [Unknown]
  - Injection site nodule [Recovered/Resolved]
  - Urticaria [Recovered/Resolved]
  - Injection site pain [Unknown]
  - Product dose omission issue [Unknown]
  - Device malfunction [Unknown]
  - Injection site bruising [Recovered/Resolved]
